FAERS Safety Report 6742215-3 (Version None)
Quarter: 2010Q2

REPORT INFORMATION
  Report Type: 
  Country: None (occurrence: None)
  Receive Date: 20100526
  Receipt Date: 20100525
  Transmission Date: 20101027
  Serious: Yes (Hospitalization)
  Sender: FDA-Public Use
  Company Number: GXKR2010DE04262

PATIENT
  Sex: Female
  Weight: 61 kg

DRUGS (1)
  1. AMINEURIN (NGX) [Suspect]
     Indication: GLOSSODYNIA
     Dosage: 25 MG, QD
     Route: 048
     Dates: start: 20100301, end: 20100401

REACTIONS (3)
  - DISORIENTATION [None]
  - TRANSIENT GLOBAL AMNESIA [None]
  - UNRESPONSIVE TO STIMULI [None]
